FAERS Safety Report 4897553-6 (Version None)
Quarter: 2006Q1

REPORT INFORMATION
  Report Type: 
  Country: None (occurrence: None)
  Receive Date: 20060130
  Receipt Date: 20060130
  Transmission Date: 20060701
  Serious: Yes (Life-Threatening, Hospitalization)
  Sender: FDA-Public Use
  Company Number: None

PATIENT
  Sex: Male
  Weight: 143 kg

DRUGS (3)
  1. METFORMIN [Suspect]
     Dosage: SEE IMAGE
     Route: 048
     Dates: start: 20031020
  2. VALSARTAN [Suspect]
     Dosage: 320 MG DAILY PO
     Route: 048
     Dates: start: 20051123
  3. LASIX [Suspect]
     Dosage: 40 MG BID PO
     Route: 048
     Dates: start: 20050201

REACTIONS (8)
  - ACUTE RESPIRATORY DISTRESS SYNDROME [None]
  - DEHYDRATION [None]
  - HAEMODIALYSIS [None]
  - INTUBATION COMPLICATION [None]
  - LACTIC ACIDOSIS [None]
  - RENAL FAILURE ACUTE [None]
  - RESPIRATORY FAILURE [None]
  - TRACHEOSTOMY [None]
